FAERS Safety Report 16430943 (Version 2)
Quarter: 2020Q3

REPORT INFORMATION
  Report Type: Spontaneous
  Country: CN (occurrence: CN)
  Receive Date: 20190614
  Receipt Date: 20190923
  Transmission Date: 20201105
  Serious: Yes (Other)
  Sender: FDA-Public Use
  Company Number: CN-ASTRAZENECA-2019SE86493

PATIENT
  Age: 28107 Day
  Sex: Female
  Weight: 50 kg

DRUGS (1)
  1. OSIMERTINIB MESYLATE. [Suspect]
     Active Substance: OSIMERTINIB MESYLATE
     Indication: LUNG ADENOCARCINOMA
     Route: 048
     Dates: start: 20190404, end: 20190529

REACTIONS (4)
  - Electrocardiogram QT prolonged [Recovering/Resolving]
  - Cardiotoxicity [Recovering/Resolving]
  - Decreased appetite [Recovering/Resolving]
  - Asthenia [Recovering/Resolving]

NARRATIVE: CASE EVENT DATE: 20190529
